FAERS Safety Report 6366156-9 (Version None)
Quarter: 2009Q3

REPORT INFORMATION
  Report Type: 
  Country: None (occurrence: None)
  Receive Date: 20090921
  Receipt Date: 20090910
  Transmission Date: 20100115
  Serious: Yes (Death, Hospitalization)
  Sender: FDA-Public Use
  Company Number: US-BIOGENIDEC-2009BI026556

PATIENT
  Age: 48 Year
  Sex: Female

DRUGS (26)
  1. AVONEX [Suspect]
     Indication: MULTIPLE SCLEROSIS
     Route: 030
     Dates: start: 20080521, end: 20080811
  2. INSULIN [Concomitant]
     Indication: TYPE 2 DIABETES MELLITUS
  3. TYLENOL (CAPLET) [Concomitant]
     Route: 048
  4. XANAX [Concomitant]
     Route: 048
  5. XANAX [Concomitant]
     Route: 048
  6. CELEXA [Concomitant]
     Route: 048
  7. KLONOPIN [Concomitant]
     Route: 048
  8. NEURONTIN [Concomitant]
     Route: 048
  9. HYCODAN [Concomitant]
     Route: 048
  10. ANUSOL [Concomitant]
     Route: 054
  11. XOPENEX [Concomitant]
  12. ZOFRAN [Concomitant]
     Route: 048
  13. TYLOX [Concomitant]
     Route: 048
  14. POTASSIUM CHLORIDE [Concomitant]
     Route: 048
  15. PREDNISONE [Concomitant]
     Route: 048
  16. PREDNISONE [Concomitant]
     Route: 048
  17. PREDNISONE [Concomitant]
     Route: 048
  18. CARAFATE [Concomitant]
     Route: 048
  19. AMBIEN [Concomitant]
     Route: 048
  20. NASAREL [Concomitant]
  21. PRILOSEC [Concomitant]
  22. COMPAZINE [Concomitant]
  23. ZANAFLEX [Concomitant]
  24. CALAN [Concomitant]
  25. BUMEX [Concomitant]
  26. ATROPINE [Concomitant]

REACTIONS (21)
  - ANAEMIA [None]
  - ASTHMA [None]
  - CHILLS [None]
  - CHRONIC OBSTRUCTIVE PULMONARY DISEASE [None]
  - CONFUSIONAL STATE [None]
  - DEEP VEIN THROMBOSIS [None]
  - DYSPNOEA [None]
  - GASTROOESOPHAGEAL REFLUX DISEASE [None]
  - GENERALISED OEDEMA [None]
  - HYPERTENSION [None]
  - HYPOKALAEMIA [None]
  - INTESTINAL HAEMORRHAGE [None]
  - IRRITABLE BOWEL SYNDROME [None]
  - LETHARGY [None]
  - MENTAL STATUS CHANGES [None]
  - NON-SMALL CELL LUNG CANCER METASTATIC [None]
  - SKIN DISORDER [None]
  - SOMNOLENCE [None]
  - THROMBOCYTOPENIA [None]
  - TREMOR [None]
  - TYPE 2 DIABETES MELLITUS [None]
